FAERS Safety Report 7931011-7 (Version None)
Quarter: 2011Q4

REPORT INFORMATION
  Report Type: 
  Country: None (occurrence: None)
  Receive Date: 20111121
  Receipt Date: 20111118
  Transmission Date: 20120403
  Serious: Yes (Life-Threatening)
  Sender: FDA-Public Use
  Company Number: AU-B.I. PHARMACEUTICALS,INC./RIDGEFIELD-2011-AU-01712AU

PATIENT
  Sex: Female

DRUGS (6)
  1. PRADAXA [Suspect]
     Dosage: 300 MG
     Dates: end: 20110825
  2. PANTOPRAZOLE [Concomitant]
     Dosage: 20 MG
  3. CRESTOR [Concomitant]
     Dosage: 20 MG
  4. FUROSEMIDE [Concomitant]
     Dosage: 40 MG
  5. METOPROLOL TARTRATE [Concomitant]
     Dosage: 50 MG
  6. ATACAND [Concomitant]
     Dosage: 32 MG

REACTIONS (2)
  - ATRIAL THROMBOSIS [None]
  - PULMONARY EMBOLISM [None]
